FAERS Safety Report 5004307-9 (Version None)
Quarter: 2006Q2

REPORT INFORMATION
  Report Type: 
  Country: None (occurrence: None)
  Receive Date: 20060517
  Receipt Date: 20060426
  Transmission Date: 20061013
  Serious: Yes (Hospitalization)
  Sender: FDA-Public Use
  Company Number: JP-MERCK-0605USA02851

PATIENT
  Age: 59 Year
  Sex: Male

DRUGS (3)
  1. PEPCID [Suspect]
     Route: 042
     Dates: start: 20060422, end: 20060425
  2. PRIMPERAN TAB [Concomitant]
     Route: 042
     Dates: start: 20060421, end: 20060424
  3. SODIUM CHLORIDE [Concomitant]
     Route: 042
     Dates: start: 20060417, end: 20060426

REACTIONS (2)
  - RESTLESSNESS [None]
  - WERNICKE'S ENCEPHALOPATHY [None]
